FAERS Safety Report 25224582 (Version 1)
Quarter: 2025Q2

REPORT INFORMATION
  Report Type: Spontaneous
  Country: US (occurrence: None)
  Receive Date: 20250421
  Receipt Date: 20250421
  Transmission Date: 20250717
  Serious: Yes (unspecified)
  Sender: FDA-CTU
  Company Number: None

PATIENT

DRUGS (1)
  1. RITUXAN [Suspect]
     Active Substance: RITUXIMAB

REACTIONS (3)
  - Infusion related reaction [None]
  - Erythema [None]
  - Rash [None]

NARRATIVE: CASE EVENT DATE: 20250418
